FAERS Safety Report 9820723 (Version 1)
Quarter: 2013Q4

REPORT INFORMATION
  Report Type: Spontaneous
  Country: US (occurrence: None)
  Receive Date: 20131028
  Receipt Date: 20131028
  Transmission Date: 20140711
  Serious: Yes (Other)
  Sender: FDA-Public Use
  Company Number: 2013US001368

PATIENT
  Age: 51 Year
  Sex: Female
  Weight: 78 kg

DRUGS (5)
  1. ICLUSIG [Suspect]
     Indication: CHRONIC MYELOID LEUKAEMIA
     Route: 048
     Dates: start: 20130302, end: 20130421
  2. OSCAL [Concomitant]
  3. ROCALTROL [Concomitant]
  4. SYNTHROID [Concomitant]
  5. MULTIVITAMIN [Concomitant]

REACTIONS (9)
  - Sunburn [None]
  - Pain of skin [None]
  - Dysphonia [None]
  - Alopecia [None]
  - Rash pruritic [None]
  - Lipase increased [None]
  - Dry skin [None]
  - Rash [None]
  - Amylase increased [None]
